FAERS Safety Report 4511597-5 (Version None)
Quarter: 2004Q4

REPORT INFORMATION
  Report Type: 
  Country: None (occurrence: None)
  Receive Date: 20041129
  Receipt Date: 20041012
  Transmission Date: 20050328
  Serious: Yes (Hospitalization)
  Sender: FDA-Public Use
  Company Number: US-BRISTOL-MYERS SQUIBB COMPANY-12729976

PATIENT
  Age: 51 Year
  Sex: Male

DRUGS (6)
  1. ABILIFY [Suspect]
     Indication: SCHIZOPHRENIA
     Route: 048
  2. ABILIFY [Suspect]
     Indication: DYSKINESIA
     Route: 048
  3. ABILIFY [Suspect]
     Indication: CATATONIA
     Route: 048
  4. VITAMIN E [Concomitant]
  5. VITAMIN B6 [Concomitant]
  6. INDERAL [Concomitant]

REACTIONS (2)
  - NEUROLEPTIC MALIGNANT SYNDROME [None]
  - OEDEMA PERIPHERAL [None]
